FAERS Safety Report 12341221 (Version 1)
Quarter: 2016Q2

REPORT INFORMATION
  Report Type: Report from Study
  Country: None (occurrence: US)
  Receive Date: 20160506
  Receipt Date: 20160506
  Transmission Date: 20160815
  Serious: Yes (Death, Life-Threatening, Other)
  Sender: FDA-Public Use
  Company Number: US-AKORN-30101

PATIENT
  Age: 30 Year
  Sex: Male

DRUGS (1)
  1. NYSTATIN ORAL SUSPENSION, USP [Suspect]
     Active Substance: NYSTATIN

REACTIONS (10)
  - Dyspnoea [Fatal]
  - Chest pain [Fatal]
  - Oesophageal ulcer [Fatal]
  - Metastases to central nervous system [Fatal]
  - Radiation oesophagitis [Fatal]
  - Odynophagia [Fatal]
  - Pyrexia [Fatal]
  - Death [Fatal]
  - Seizure [Fatal]
  - Dyspepsia [Fatal]
